FAERS Safety Report 17686762 (Version 1)
Quarter: 2020Q2

REPORT INFORMATION
  Report Type: Report from Study
  Country: CA (occurrence: CA)
  Receive Date: 20200421
  Receipt Date: 20200421
  Transmission Date: 20200714
  Serious: Yes (Disabling, Other)
  Sender: FDA-Public Use
  Company Number: CA-JNJFOC-20200417208

PATIENT
  Sex: Female
  Weight: 129 kg

DRUGS (1)
  1. REMICADE [Suspect]
     Active Substance: INFLIXIMAB
     Indication: PYODERMA GANGRENOSUM
     Dosage: LAST INFUSION: 11-APR-2020
     Route: 042

REACTIONS (5)
  - Diabetes mellitus [Recovered/Resolved]
  - Rash [Unknown]
  - Product use in unapproved indication [Unknown]
  - Pyoderma gangrenosum [Not Recovered/Not Resolved]
  - Off label use [Unknown]

NARRATIVE: CASE EVENT DATE: 2019
